FAERS Safety Report 23153119 (Version 1)
Quarter: 2023Q4

REPORT INFORMATION
  Report Type: Spontaneous
  Country: US (occurrence: None)
  Receive Date: 20231105
  Receipt Date: 20231105
  Transmission Date: 20240110
  Serious: No
  Sender: FDA-Public Use
  Company Number: None

PATIENT
  Sex: Female
  Weight: 70.31 kg

DRUGS (2)
  1. NEXPLANON [Suspect]
     Active Substance: ETONOGESTREL
     Indication: Contraception
     Dates: start: 20200117
  2. ZOFRAN [Concomitant]
     Active Substance: ONDANSETRON HYDROCHLORIDE

REACTIONS (13)
  - Quality of life decreased [None]
  - Heavy menstrual bleeding [None]
  - Gastrointestinal pain [None]
  - Gastrointestinal motility disorder [None]
  - Hypoaesthesia [None]
  - Nausea [None]
  - Dizziness [None]
  - Anxiety [None]
  - Depression [None]
  - Headache [None]
  - Mood swings [None]
  - Dysmenorrhoea [None]
  - Weight increased [None]
